FAERS Safety Report 10517039 (Version 2)
Quarter: 2014Q4

REPORT INFORMATION
  Report Type: Spontaneous
  Country: FR (occurrence: FR)
  Receive Date: 20141014
  Receipt Date: 20141014
  Transmission Date: 20150528
  Serious: Yes (Hospitalization, Other)
  Sender: FDA-Public Use
  Company Number: FR-MYLANLABS-2007S1012357

PATIENT

DRUGS (9)
  1. MERCAPTAMINE BITARTRATE [Suspect]
     Active Substance: CYSTEAMINE
     Dosage: 1600 MG,UNK
     Dates: end: 20071113
  2. ERYTHROPOIETIN [Concomitant]
     Active Substance: ERYTHROPOIETIN
     Dosage: UNK
  3. MERCAPTAMINE BITARTRATE [Suspect]
     Active Substance: CYSTEAMINE
     Indication: CYSTINOSIS
     Dosage: UNK
     Route: 048
     Dates: start: 1996
  4. MERCAPTAMINE BITARTRATE [Suspect]
     Active Substance: CYSTEAMINE
     Dosage: 200 MG,QID
     Dates: start: 200801
  5. CALCIDIA [Concomitant]
     Active Substance: CALCIUM POLYCARBOPHIL
     Dosage: UNK
  6. MERCAPTAMINE BITARTRATE [Suspect]
     Active Substance: CYSTEAMINE
     Dosage: 100 MG,QID
     Dates: start: 200712, end: 200801
  7. POTASSIUM BICARBONATE. [Concomitant]
     Active Substance: POTASSIUM BICARBONATE
     Dosage: UNK
  8. CYSTEAMINE /00492501/ [Concomitant]
     Dosage: UNK
     Route: 047
  9. 1-ALPHA [Concomitant]
     Active Substance: ALFACALCIDOL
     Dosage: UNK

REACTIONS (6)
  - Seizure [Recovered/Resolved]
  - Somnolence [Recovered/Resolved]
  - Tachycardia [None]
  - Depressed level of consciousness [Recovered/Resolved]
  - Anuria [Recovered/Resolved]
  - Pyrexia [Recovered/Resolved]

NARRATIVE: CASE EVENT DATE: 20071113
